FAERS Safety Report 9995676 (Version 1)
Quarter: 2014Q1

REPORT INFORMATION
  Report Type: Spontaneous
  Country: US (occurrence: None)
  Receive Date: 20140310
  Receipt Date: 20140310
  Transmission Date: 20141002
  Serious: Yes (Other)
  Sender: FDA-Public Use
  Company Number: None

PATIENT
  Age: 99 Day
  Sex: Male
  Weight: 18.14 kg

DRUGS (1)
  1. FENWAL ACD-A [Suspect]

REACTIONS (2)
  - Product label issue [None]
  - Incorrect route of drug administration [None]
